APPROVED DRUG PRODUCT: MORPHINE SULFATE
Active Ingredient: MORPHINE SULFATE
Strength: 2MG/ML
Dosage Form/Route: INJECTABLE;INJECTION
Application: N020631 | Product #002
Applicant: SPECGX LLC
Approved: Jul 3, 1996 | RLD: No | RS: No | Type: DISCN